FAERS Safety Report 4535326-4 (Version None)
Quarter: 2004Q4

REPORT INFORMATION
  Report Type: 
  Country: None (occurrence: None)
  Receive Date: 20041214
  Receipt Date: 20040914
  Transmission Date: 20050328
  Serious: No
  Sender: FDA-Public Use
  Company Number: 2004236613US

PATIENT
  Sex: Female
  Weight: 90.7 kg

DRUGS (1)
  1. BEXTRA [Suspect]
     Dosage: QD
     Dates: start: 20011201

REACTIONS (3)
  - DRUG ERUPTION [None]
  - PSORIASIS [None]
  - RASH [None]
